FAERS Safety Report 11133386 (Version 1)
Quarter: 2015Q2

REPORT INFORMATION
  Report Type: Report from Study
  Country: KR (occurrence: KR)
  Receive Date: 20150522
  Receipt Date: 20150522
  Transmission Date: 20150821
  Serious: Yes (Hospitalization)
  Sender: FDA-Public Use
  Company Number: KR-PURDUE-DEU-2015-0016207

PATIENT
  Age: 72 Year
  Sex: Female

DRUGS (5)
  1. AMODIPIN [Concomitant]
     Indication: PROPHYLAXIS
     Dosage: 2 TABLET, DAILY
     Route: 048
     Dates: start: 20141030, end: 20141209
  2. HUMULIN R [Concomitant]
     Active Substance: INSULIN HUMAN
     Indication: DIABETES MELLITUS
     Dosage: 16 UNIT, UNK
     Route: 042
     Dates: start: 20141201, end: 20150106
  3. AMODIPIN [Concomitant]
     Indication: CHRONIC KIDNEY DISEASE
  4. OXYCODONE HCL/NALOXONE HCL CR TAB [Suspect]
     Active Substance: NALOXONE HYDROCHLORIDE\OXYCODONE HYDROCHLORIDE
     Indication: PAIN
     Dosage: 20/10 MG, DAILY
     Route: 048
     Dates: start: 20141112, end: 20141209
  5. LOSARTAN [Concomitant]
     Active Substance: LOSARTAN
     Indication: HYPERTENSION
     Dosage: 1 DF, DAILY
     Route: 048
     Dates: start: 20141031, end: 20141209

REACTIONS (1)
  - Acute kidney injury [Recovered/Resolved]

NARRATIVE: CASE EVENT DATE: 20141208
